FAERS Safety Report 7493390-7 (Version None)
Quarter: 2011Q2

REPORT INFORMATION
  Report Type: 
  Country: None (occurrence: None)
  Receive Date: 20110520
  Receipt Date: 20110517
  Transmission Date: 20111010
  Serious: Yes (Hospitalization)
  Sender: FDA-Public Use
  Company Number: US-PFIZER INC-2011106271

PATIENT
  Sex: Female
  Weight: 56.689 kg

DRUGS (3)
  1. SYNTHROID [Concomitant]
     Indication: THYROID THERAPY
     Dosage: UNK
  2. SUTENT [Suspect]
     Indication: THYROID CANCER
     Dosage: 50 MG, DAILY
     Route: 048
     Dates: start: 20110418, end: 20110428
  3. WARFARIN [Concomitant]
     Indication: SUPPORTIVE CARE
     Dosage: UNK

REACTIONS (1)
  - DEHYDRATION [None]
